FAERS Safety Report 8813714 (Version 1)
Quarter: 2012Q4

REPORT INFORMATION
  Report Type: 
  Country: US (occurrence: US)
  Receive Date: 20120928
  Receipt Date: 20120928
  Transmission Date: 20130627
  Serious: Yes (Other)
  Sender: FDA-Public Use
  Company Number: US-ROCHE-1137891

PATIENT

DRUGS (1)
  1. ALTEPLASE [Suspect]
     Indication: CEREBROVASCULAR ACCIDENT
     Route: 065

REACTIONS (2)
  - Cerebral haemorrhage [Unknown]
  - Accidental exposure to product [Unknown]
